FAERS Safety Report 5105485-3 (Version None)
Quarter: 2006Q3

REPORT INFORMATION
  Report Type: 
  Country: None (occurrence: None)
  Receive Date: 20060915
  Receipt Date: 20060807
  Transmission Date: 20061208
  Serious: Yes (Disabling)
  Sender: FDA-Public Use
  Company Number: PHNU2006DE02733

PATIENT
  Sex: Male
  Weight: 79 kg

DRUGS (5)
  1. LOCOL [Suspect]
     Dosage: 80 MG, QD
     Route: 048
  2. GLIBENCLAMIDE ^RATIOPHARM^ [Concomitant]
     Indication: DIABETES MELLITUS
     Dosage: 0.5 DF, QD
     Route: 048
     Dates: start: 20031001
  3. AMLODIPINE [Concomitant]
     Indication: HYPERTENSION
     Dosage: 5 MG, QD
     Route: 048
     Dates: start: 20030301
  4. QUINAPRIL [Concomitant]
     Indication: HYPERTENSION
     Dosage: 10 MG, QD
     Route: 048
     Dates: start: 20041101
  5. BELOC-ZOK [Concomitant]
     Dosage: 1 DF, QD
     Route: 048
     Dates: start: 20010701

REACTIONS (1)
  - MACULAR DEGENERATION [None]
